FAERS Safety Report 5457999-4 (Version None)
Quarter: 2007Q3

REPORT INFORMATION
  Report Type: 
  Country: None (occurrence: None)
  Receive Date: 20070917
  Receipt Date: 20070904
  Transmission Date: 20080115
  Serious: Yes (Other)
  Sender: FDA-Public Use
  Company Number: MEDI-0005478

PATIENT
  Sex: Male

DRUGS (4)
  1. SYNAGIS [Suspect]
     Indication: ANTIVIRAL PROPHYLAXIS
     Dosage: SEE MAGE
     Route: 030
     Dates: start: 20021114, end: 20030313
  2. SYNAGIS [Suspect]
     Indication: ANTIVIRAL PROPHYLAXIS
     Dosage: SEE MAGE
     Route: 030
     Dates: start: 20021114
  3. SYNAGIS [Suspect]
     Indication: ANTIVIRAL PROPHYLAXIS
     Dosage: SEE MAGE
     Route: 030
     Dates: start: 20021212
  4. SYNAGIS [Suspect]
     Indication: ANTIVIRAL PROPHYLAXIS
     Dosage: SEE MAGE
     Route: 030
     Dates: start: 20030109

REACTIONS (1)
  - MUSCLE CONTRACTURE [None]
